FAERS Safety Report 20298570 (Version 1)
Quarter: 2022Q1

REPORT INFORMATION
  Report Type: Spontaneous
  Country: US (occurrence: None)
  Receive Date: 20220104
  Receipt Date: 20220104
  Transmission Date: 20220423
  Serious: No
  Sender: FDA-Public Use
  Company Number: None

PATIENT
  Age: 58 Year
  Weight: 106 kg

DRUGS (1)
  1. BAMLANIVIMAB\ETESEVIMAB [Suspect]
     Active Substance: BAMLANIVIMAB\ETESEVIMAB
     Route: 042
     Dates: start: 20211226, end: 20211226

REACTIONS (5)
  - Dyspnoea [None]
  - Swelling face [None]
  - Flushing [None]
  - Cough [None]
  - Hyperhidrosis [None]

NARRATIVE: CASE EVENT DATE: 20211226
